FAERS Safety Report 6100086-2 (Version None)
Quarter: 2009Q1

REPORT INFORMATION
  Report Type: 
  Country: None (occurrence: None)
  Receive Date: 20090303
  Receipt Date: 20090225
  Transmission Date: 20090719
  Serious: Yes (Other)
  Sender: FDA-Public Use
  Company Number: B0562292A

PATIENT
  Age: 81 Year
  Sex: Female

DRUGS (1)
  1. ZINACEF [Suspect]
     Indication: URINARY TRACT INFECTION
     Route: 042

REACTIONS (1)
  - MELAENA [None]
